FAERS Safety Report 24755804 (Version 1)
Quarter: 2024Q4

REPORT INFORMATION
  Report Type: Spontaneous
  Country: CA (occurrence: CA)
  Receive Date: 20241219
  Receipt Date: 20241219
  Transmission Date: 20250115
  Serious: Yes (Life-Threatening)
  Sender: EISAI
  Company Number: CA-Eisai-EC-2024-180945

PATIENT
  Age: 53 Year
  Sex: Male

DRUGS (1)
  1. DAYVIGO [Suspect]
     Active Substance: LEMBOREXANT
     Indication: Insomnia
     Route: 048

REACTIONS (4)
  - Dizziness [Recovering/Resolving]
  - Palpitations [Recovering/Resolving]
  - Presyncope [Recovering/Resolving]
  - Supraventricular tachycardia [Recovering/Resolving]
